FAERS Safety Report 13234209 (Version 1)
Quarter: 2017Q1

REPORT INFORMATION
  Report Type: Spontaneous
  Country: None (occurrence: US)
  Receive Date: 20170214
  Receipt Date: 20170214
  Transmission Date: 20170428
  Serious: No
  Sender: FDA-Public Use
  Company Number: None

PATIENT
  Age: 57 Year
  Sex: Female

DRUGS (1)
  1. GLATOPA [Suspect]
     Active Substance: GLATIRAMER ACETATE
     Indication: MULTIPLE SCLEROSIS
     Route: 058
     Dates: start: 201611

REACTIONS (4)
  - Musculoskeletal pain [None]
  - Throat tightness [None]
  - Neck pain [None]
  - Tachycardia [None]

NARRATIVE: CASE EVENT DATE: 20170211
